FAERS Safety Report 19032071 (Version 1)
Quarter: 2021Q1

REPORT INFORMATION
  Report Type: Spontaneous
  Country: KR (occurrence: KR)
  Receive Date: 20210319
  Receipt Date: 20210319
  Transmission Date: 20210420
  Serious: Yes (Life-Threatening, Other)
  Sender: FDA-Public Use
  Company Number: KR-ASTRAZENECA-2021A147041

PATIENT
  Age: 78 Year
  Sex: Male

DRUGS (1)
  1. GEFITINIB. [Suspect]
     Active Substance: GEFITINIB
     Route: 048
     Dates: start: 20200305, end: 202005

REACTIONS (3)
  - Metastases to meninges [Unknown]
  - Ataxia [Unknown]
  - Malignant neoplasm progression [Unknown]
